FAERS Safety Report 24642747 (Version 1)
Quarter: 2024Q4

REPORT INFORMATION
  Report Type: Spontaneous
  Country: US (occurrence: None)
  Receive Date: 20241119
  Receipt Date: 20241119
  Transmission Date: 20250115
  Serious: Yes (Other)
  Sender: Public
  Company Number: None

PATIENT
  Age: 42 Year
  Sex: Female
  Weight: 108 kg

DRUGS (2)
  1. VUEWAY [Suspect]
     Active Substance: GADOPICLENOL
     Indication: Back pain
     Dosage: OTHER FREQUENCY : ONE TIME;?
     Route: 040
  2. VUEWAY [Suspect]
     Active Substance: GADOPICLENOL
     Indication: Radiculopathy

REACTIONS (5)
  - Adverse drug reaction [None]
  - Nausea [None]
  - Vomiting [None]
  - Headache [None]
  - Chest pain [None]

NARRATIVE: CASE EVENT DATE: 20241113
